FAERS Safety Report 15898658 (Version 1)
Quarter: 2019Q1

REPORT INFORMATION
  Report Type: Spontaneous
  Country: IT (occurrence: IT)
  Receive Date: 20190201
  Receipt Date: 20190201
  Transmission Date: 20190417
  Serious: Yes (Other)
  Sender: FDA-Public Use
  Company Number: IT-ACCORD-104708

PATIENT
  Age: 73 Year
  Sex: Female
  Weight: 0 kg

DRUGS (2)
  1. CARBOPLATIN PFIZER [Suspect]
     Active Substance: CARBOPLATIN
     Indication: NEOPLASM OF THYMUS
     Route: 042
  2. ETOPOSIDE ACCORD [Suspect]
     Active Substance: ETOPOSIDE
     Indication: NEOPLASM OF THYMUS
     Route: 042

REACTIONS (4)
  - Hypoxia [Recovered/Resolved]
  - Throat tightness [Recovered/Resolved]
  - Off label use [Unknown]
  - Dyspnoea [Recovered/Resolved]

NARRATIVE: CASE EVENT DATE: 20180103
